FAERS Safety Report 9649413 (Version 1)
Quarter: 2013Q4

REPORT INFORMATION
  Report Type: Spontaneous
  Country: DE (occurrence: DE)
  Receive Date: 20131028
  Receipt Date: 20131028
  Transmission Date: 20140711
  Serious: Yes (Disabling, Congenital Anomaly)
  Sender: FDA-Public Use
  Company Number: GXKR2013DE003382

PATIENT
  Sex: Female
  Weight: 3 kg

DRUGS (2)
  1. SERTRALINE [Suspect]
     Dosage: MATERNAL DOSE: 50 MG
     Route: 062
  2. PAROXAT [Suspect]
     Dosage: MATERNAL DOSE: 20 MG
     Route: 062

REACTIONS (4)
  - Syndactyly [Not Recovered/Not Resolved]
  - Brachydactyly [Not Recovered/Not Resolved]
  - Adactyly [Not Recovered/Not Resolved]
  - Foetal exposure during pregnancy [Unknown]
